FAERS Safety Report 7603542-0 (Version None)
Quarter: 2011Q3

REPORT INFORMATION
  Report Type: 
  Country: None (occurrence: None)
  Receive Date: 20110712
  Receipt Date: 20110627
  Transmission Date: 20111222
  Serious: No
  Sender: FDA-Public Use
  Company Number: US-B.I. PHARMACEUTICALS,INC./RIDGEFIELD-2011-BP-16390BP

PATIENT
  Age: 71 Year
  Sex: Male

DRUGS (8)
  1. GENERLAC [Concomitant]
  2. PRADAXA [Suspect]
     Indication: ATRIAL FIBRILLATION
     Dosage: 300 MG
     Route: 048
     Dates: start: 20110606
  3. NAPROXEN [Concomitant]
  4. COREG [Concomitant]
  5. DARVON [Concomitant]
  6. DIGOXIN [Concomitant]
  7. AMIODO [Concomitant]
  8. MEVACOR [Concomitant]

REACTIONS (3)
  - ABDOMINAL DISCOMFORT [None]
  - ASTHENIA [None]
  - HYPOTENSION [None]
